FAERS Safety Report 7861633-3 (Version None)
Quarter: 2011Q4

REPORT INFORMATION
  Report Type: 
  Country: None (occurrence: None)
  Receive Date: 20111027
  Receipt Date: 20111014
  Transmission Date: 20120403
  Serious: Yes (Other)
  Sender: FDA-Public Use
  Company Number: PHHY2011PK91814

PATIENT
  Age: 62 Year
  Sex: Male

DRUGS (6)
  1. QUETIAPINE [Suspect]
     Dosage: 100 MG, DAILY
  2. SERTRALINE HYDROCHLORIDE [Suspect]
     Dosage: 100 MG, UNK
  3. RISPERIDONE [Suspect]
     Dosage: 0.5 MG, UNK
  4. PROPRANOLOL [Concomitant]
     Dosage: 30 MG, DAILY
  5. SERTRALINE HYDROCHLORIDE [Suspect]
     Indication: DEPRESSION
     Dosage: 50 MG, DAILY
  6. RISPERIDONE [Suspect]
     Indication: INSOMNIA
     Dosage: 1 MG, DAILY

REACTIONS (9)
  - DYSKINESIA [None]
  - GRANDIOSITY [None]
  - RESPIRATORY RATE INCREASED [None]
  - RESPIRATORY DYSKINESIA [None]
  - STEREOTYPY [None]
  - PSYCHOMOTOR HYPERACTIVITY [None]
  - DYSPNOEA [None]
  - DRUG INEFFECTIVE [None]
  - HYPOMANIA [None]
